FAERS Safety Report 5544037-8 (Version None)
Quarter: 2007Q4

REPORT INFORMATION
  Report Type: 
  Country: None (occurrence: None)
  Receive Date: 20071210
  Receipt Date: 20070202
  Transmission Date: 20080405
  Serious: No
  Sender: FDA-Public Use
  Company Number: US-AMGEN-KDL199231

PATIENT
  Sex: Female

DRUGS (2)
  1. ENBREL [Suspect]
     Indication: RHEUMATOID ARTHRITIS
     Route: 058
     Dates: start: 20061011
  2. METHOTREXATE [Concomitant]
     Route: 048
     Dates: start: 20010101

REACTIONS (3)
  - BLADDER REPAIR [None]
  - FLANK PAIN [None]
  - HAEMATURIA [None]
